FAERS Safety Report 9742613 (Version 2)
Quarter: 2015Q3

REPORT INFORMATION
  Report Type: Spontaneous
  Country: US (occurrence: US)
  Receive Date: 20131210
  Receipt Date: 20150804
  Transmission Date: 20151125
  Serious: Yes (Other)
  Sender: FDA-Public Use
  Company Number: US-GILEAD-2009-0024736

PATIENT
  Age: 73 Year
  Sex: Female
  Weight: 101.15 kg

DRUGS (19)
  1. ALDACTONE [Concomitant]
     Active Substance: SPIRONOLACTONE
  2. DIOVAN HCT [Concomitant]
     Active Substance: HYDROCHLOROTHIAZIDE\VALSARTAN
  3. PROVENTIL [Concomitant]
     Active Substance: ALBUTEROL
  4. TUMS CALCIUM [Concomitant]
  5. KLOR-CON [Concomitant]
     Active Substance: POTASSIUM CHLORIDE
  6. REFRESH [Concomitant]
     Active Substance: UNSPECIFIED INGREDIENT
  7. LASIX [Concomitant]
     Active Substance: FUROSEMIDE
  8. HYDRALAZINE [Concomitant]
     Active Substance: HYDRALAZINE HYDROCHLORIDE
  9. COREG [Concomitant]
     Active Substance: CARVEDILOL
  10. DUONEB [Concomitant]
     Active Substance: ALBUTEROL SULFATE\IPRATROPIUM BROMIDE
  11. COUMADIN [Concomitant]
     Active Substance: WARFARIN SODIUM
  12. ADVAIR HFA [Concomitant]
     Active Substance: FLUTICASONE PROPIONATE\SALMETEROL XINAFOATE
  13. A-Z MULTIVITAMIN [Concomitant]
  14. LETAIRIS [Suspect]
     Active Substance: AMBRISENTAN
     Indication: PULMONARY ARTERIAL HYPERTENSION
     Route: 048
     Dates: start: 20090917
  15. OXYGEN. [Concomitant]
     Active Substance: OXYGEN
  16. REVATIO [Concomitant]
     Active Substance: SILDENAFIL CITRATE
  17. LANTUS [Concomitant]
     Active Substance: INSULIN GLARGINE
  18. GLIPIZIDE. [Concomitant]
     Active Substance: GLIPIZIDE
  19. SALINE NASAL SPRAY [Concomitant]
     Active Substance: SODIUM CHLORIDE

REACTIONS (4)
  - Swelling [Unknown]
  - Weight increased [Unknown]
  - Palpitations [Unknown]
  - Dyspnoea [Unknown]
